FAERS Safety Report 19477840 (Version 1)
Quarter: 2021Q2

REPORT INFORMATION
  Report Type: Report from Study
  Country: IT (occurrence: IT)
  Receive Date: 20210630
  Receipt Date: 20210630
  Transmission Date: 20210717
  Serious: Yes (Hospitalization)
  Sender: FDA-Public Use
  Company Number: IT-MYLANLABS-2021M1038812

PATIENT
  Age: 90 Year
  Sex: Male

DRUGS (1)
  1. DONEPEZIL. [Suspect]
     Active Substance: DONEPEZIL
     Indication: DEMENTIA
     Dosage: 1 DOSAGE FORM, QD
     Route: 048
     Dates: end: 20201223

REACTIONS (1)
  - Defect conduction intraventricular [Recovering/Resolving]

NARRATIVE: CASE EVENT DATE: 20201222
